FAERS Safety Report 7103761-6 (Version None)
Quarter: 2010Q4

REPORT INFORMATION
  Report Type: 
  Country: None (occurrence: None)
  Receive Date: 20101115
  Receipt Date: 20101102
  Transmission Date: 20110411
  Serious: Yes (Hospitalization, Other)
  Sender: FDA-Public Use
  Company Number: US-ROCHE-718757

PATIENT
  Sex: Female
  Weight: 49.9 kg

DRUGS (2)
  1. ACCUTANE [Suspect]
     Indication: ACNE
     Dosage: 40 MG DAILY ON ODD DAYS AND 80 MG DAILY ON EVEN DAYS
     Route: 048
     Dates: start: 19990201, end: 19990601
  2. ACCUTANE [Suspect]
     Route: 048
     Dates: start: 19991201, end: 20000501

REACTIONS (13)
  - ADJUSTMENT DISORDER [None]
  - ANAEMIA [None]
  - ARTHRALGIA [None]
  - COLITIS ULCERATIVE [None]
  - CROHN'S DISEASE [None]
  - CYSTITIS INTERSTITIAL [None]
  - DEPRESSION [None]
  - GASTROINTESTINAL INJURY [None]
  - INFLAMMATORY BOWEL DISEASE [None]
  - INTESTINAL OBSTRUCTION [None]
  - IRRITABLE BOWEL SYNDROME [None]
  - MAJOR DEPRESSION [None]
  - MALABSORPTION [None]
